FAERS Safety Report 24669978 (Version 1)
Quarter: 2024Q4

REPORT INFORMATION
  Report Type: Report from Study
  Country: CA (occurrence: CA)
  Receive Date: 20241127
  Receipt Date: 20241127
  Transmission Date: 20250115
  Serious: Yes (Other)
  Sender: ACCORD
  Company Number: None

PATIENT
  Age: 47 Year
  Sex: Female

DRUGS (15)
  1. TACROLIMUS [Suspect]
     Active Substance: TACROLIMUS
     Indication: Product used for unknown indication
  2. CROMOLYN SODIUM [Suspect]
     Active Substance: CROMOLYN SODIUM
     Indication: Product used for unknown indication
     Dosage: 1 EVERY 1 DAYS
  3. HYDROXYZINE [Suspect]
     Active Substance: HYDROXYZINE HYDROCHLORIDE
     Indication: Product used for unknown indication
  4. OMALIZUMAB [Suspect]
     Active Substance: OMALIZUMAB
     Indication: Chronic spontaneous urticaria
     Route: 058
  5. PREDNISONE [Suspect]
     Active Substance: PREDNISONE
     Indication: Product used for unknown indication
  6. CYCLOSPORINE [Suspect]
     Active Substance: CYCLOSPORINE
     Indication: Product used for unknown indication
  7. CLINDAMYCIN [Concomitant]
     Active Substance: CLINDAMYCIN
     Indication: Prophylaxis
  8. BILASTINE [Concomitant]
     Active Substance: BILASTINE
     Indication: Product used for unknown indication
  9. KETOTIFEN [Concomitant]
     Active Substance: KETOTIFEN
     Indication: Product used for unknown indication
  10. SINGULAIR [Concomitant]
     Active Substance: MONTELUKAST SODIUM
     Indication: Product used for unknown indication
     Dosage: 1 EVERY 1 DAYS
  11. ZANTAC [Concomitant]
     Active Substance: RANITIDINE HYDROCHLORIDE
     Indication: Product used for unknown indication
     Dosage: 1 EVERY .5 DAYS
  12. CROMOLYN SODIUM [Suspect]
     Active Substance: CROMOLYN SODIUM
     Indication: Product used for unknown indication
     Dosage: 1 EVERY .3 DAYS
  13. CROMOLYN SODIUM [Suspect]
     Active Substance: CROMOLYN SODIUM
     Indication: Product used for unknown indication
  14. OMALIZUMAB [Suspect]
     Active Substance: OMALIZUMAB
     Indication: Chronic spontaneous urticaria
     Dosage: 1 EVERY 3 WEEKS AND 1 EVERY 2 WEEKS
     Route: 058
  15. OMALIZUMAB [Suspect]
     Active Substance: OMALIZUMAB
     Indication: Chronic spontaneous urticaria
     Dosage: 1 EVERY 2 WEEKS
     Route: 058

REACTIONS (25)
  - Aphonia [Recovering/Resolving]
  - COVID-19 [Recovering/Resolving]
  - Diarrhoea [Recovering/Resolving]
  - Drug intolerance [Recovering/Resolving]
  - Flushing [Recovering/Resolving]
  - Food allergy [Recovering/Resolving]
  - General physical health deterioration [Recovering/Resolving]
  - Goitre [Recovering/Resolving]
  - Hypersensitivity [Recovering/Resolving]
  - Insomnia [Recovering/Resolving]
  - Intentional product misuse [Recovering/Resolving]
  - Memory impairment [Recovering/Resolving]
  - Muscle spasms [Recovering/Resolving]
  - Nonspecific reaction [Recovering/Resolving]
  - Perfume sensitivity [Recovering/Resolving]
  - Pharyngeal disorder [Recovering/Resolving]
  - Pruritus [Recovering/Resolving]
  - Rotator cuff syndrome [Recovering/Resolving]
  - Sinus congestion [Recovering/Resolving]
  - Sinusitis [Recovering/Resolving]
  - Therapeutic product effect decreased [Recovering/Resolving]
  - Urticaria [Recovering/Resolving]
  - Viral uveitis [Recovering/Resolving]
  - Weight decreased [Recovering/Resolving]
  - White coat hypertension [Recovering/Resolving]
